FAERS Safety Report 7498762-2 (Version None)
Quarter: 2011Q2

REPORT INFORMATION
  Report Type: 
  Country: None (occurrence: None)
  Receive Date: 20110524
  Receipt Date: 20110517
  Transmission Date: 20111010
  Serious: Yes (Other)
  Sender: FDA-Public Use
  Company Number: US-PFIZER INC-2011107080

PATIENT
  Sex: Female
  Weight: 64.853 kg

DRUGS (9)
  1. CHANTIX [Suspect]
     Indication: SMOKING CESSATION THERAPY
     Dosage: 0.5 MG, 1X/DAY
     Route: 048
     Dates: start: 20110428, end: 20110101
  2. CHANTIX [Suspect]
     Dosage: UNK
     Dates: start: 20110101, end: 20110501
  3. CRESTOR [Concomitant]
     Indication: BLOOD CHOLESTEROL INCREASED
     Dosage: 10 MG, UNK, DAILY
     Route: 048
  4. BUSPAR [Concomitant]
     Dosage: 20 MG, 2X/DAY
     Route: 048
  5. LOVAZA [Concomitant]
     Dosage: 1 G, 2X/DAY
     Route: 048
  6. DIAZEPAM [Concomitant]
     Indication: SLEEP DISORDER
     Dosage: 20 MG, UNK, DAILY
     Route: 048
  7. EFFEXOR [Concomitant]
  8. HYDROCHLOROTHIAZIDE [Concomitant]
     Indication: HYPERTENSION
     Dosage: 25 MG, UNK, DAILY
     Route: 048
  9. ELAVIL [Concomitant]
     Indication: RESTLESS LEGS SYNDROME
     Dosage: 50 MG, 1X/DAY, DAILY
     Route: 048

REACTIONS (5)
  - ABNORMAL DREAMS [None]
  - DEPRESSION [None]
  - SPEECH DISORDER [None]
  - ASTHENIA [None]
  - SOMNOLENCE [None]
